FAERS Safety Report 4914797-5 (Version None)
Quarter: 2006Q1

REPORT INFORMATION
  Report Type: 
  Country: None (occurrence: None)
  Receive Date: 20060113
  Receipt Date: 20051021
  Transmission Date: 20060701
  Serious: No
  Sender: FDA-Public Use
  Company Number: 2005SP003622

PATIENT
  Age: 48 Year
  Sex: Male
  Weight: 86.1834 kg

DRUGS (14)
  1. LUNESTA [Suspect]
     Indication: INSOMNIA
     Dosage: 3 MG;HS;ORAL
     Route: 048
     Dates: start: 20050601
  2. LUNESTA [Suspect]
     Indication: SLEEP APNOEA SYNDROME
     Dosage: 3 MG;HS;ORAL
     Route: 048
     Dates: start: 20050601
  3. PREVACID [Concomitant]
  4. MERCAPTOPURINE [Concomitant]
  5. BUSPAR [Concomitant]
  6. ATORVASTATIN CALCIUM [Concomitant]
  7. FLUDROCORTISONE [Concomitant]
  8. TRAZODONE HCL [Concomitant]
  9. ACTOS [Concomitant]
  10. WELLBUTRIN [Concomitant]
  11. TRICOR [Concomitant]
  12. CALCIUM WITH VITAMIN D [Concomitant]
  13. FISH OIL [Concomitant]
  14. CENTRUM [Concomitant]

REACTIONS (1)
  - DYSGEUSIA [None]
